FAERS Safety Report 9290500 (Version 2)
Quarter: 2013Q1

REPORT INFORMATION
  Report Type: Spontaneous
  Country: NO (occurrence: None)
  Receive Date: 20121002
  Receipt Date: 20121221
  Transmission Date: 20140127
  Serious: Yes (Death)
  Sender: FDA-Public Use
  Company Number: B0788889A

PATIENT
  Age: 66 Year
  Sex: Female

DRUGS (2)
  1. PAROXETINE HYDROCHLORIDE [Suspect]
  2. PARACETAMOL + CODEINE [Suspect]

REACTIONS (2)
  - Toxicity to various agents [None]
  - Inhibitory drug interaction [None]
